FAERS Safety Report 7519766-7 (Version None)
Quarter: 2011Q2

REPORT INFORMATION
  Report Type: 
  Country: None (occurrence: None)
  Receive Date: 20110602
  Receipt Date: 20110519
  Transmission Date: 20111010
  Serious: Yes (Hospitalization, Other)
  Sender: FDA-Public Use
  Company Number: US-CELGENEUS-163-21880-11042978

PATIENT
  Sex: Female
  Weight: 63.469 kg

DRUGS (22)
  1. FERGON [Concomitant]
     Route: 065
  2. NOVOLIN 70/30 [Concomitant]
     Route: 065
  3. DIFLUCAN [Concomitant]
     Route: 065
  4. ATENOLOL [Concomitant]
     Route: 065
  5. FOSAMAX [Concomitant]
     Route: 065
  6. NORVASC [Concomitant]
     Route: 065
  7. DEXAMETHASONE [Concomitant]
     Route: 065
  8. REVLIMID [Suspect]
     Indication: MULTIPLE MYELOMA
     Dosage: 25 MILLIGRAM
     Route: 048
     Dates: start: 20110302
  9. CALCIFEROL [Concomitant]
     Route: 065
  10. VICODIN [Concomitant]
     Route: 065
  11. DYAZIDE [Concomitant]
     Route: 065
  12. ZOFRAN [Concomitant]
     Route: 065
  13. REGLAN [Concomitant]
     Indication: NAUSEA
     Dosage: 10 MILLIGRAM
     Route: 065
     Dates: start: 20110401
  14. REGLAN [Concomitant]
     Indication: VOMITING
  15. PROTONIX [Concomitant]
     Route: 065
  16. FEXOFENADINE [Concomitant]
     Route: 065
  17. LISINOPRIL [Concomitant]
     Route: 065
  18. MS CONTIN [Concomitant]
     Indication: PAIN
     Route: 065
  19. VELCADE [Concomitant]
     Route: 065
  20. NORMAL SALINE W/ POTASSIUM CHLORIDE [Concomitant]
     Dosage: 1000ML/30MEQ
     Route: 051
     Dates: start: 20110401
  21. FOLIC ACID [Concomitant]
     Route: 065
  22. GLIPIZIDE [Concomitant]
     Route: 065

REACTIONS (4)
  - GASTRITIS [None]
  - ANAEMIA [None]
  - CHOLECYSTITIS ACUTE [None]
  - GASTROINTESTINAL HAEMORRHAGE [None]
